FAERS Safety Report 9081303 (Version 1)
Quarter: 2013Q1

REPORT INFORMATION
  Report Type: Spontaneous
  Country: US (occurrence: US)
  Receive Date: 20130218
  Receipt Date: 20130218
  Transmission Date: 20140127
  Serious: No
  Sender: FDA-Public Use
  Company Number: US-PFIZER INC-2013057106

PATIENT
  Sex: Female

DRUGS (3)
  1. MEDROL [Suspect]
     Indication: RHEUMATOID ARTHRITIS
     Dosage: 8 MG, 1X/DAY
     Route: 048
  2. MEDROL [Suspect]
     Dosage: 4 MG, 1X/DAY
     Route: 048
  3. MEDROL [Suspect]
     Dosage: 6 MG, 1X/DAY
     Route: 048

REACTIONS (4)
  - Diarrhoea [Recovered/Resolved]
  - Head discomfort [Recovered/Resolved]
  - Fatigue [Recovered/Resolved]
  - Feeling abnormal [Recovered/Resolved]
